FAERS Safety Report 19659745 (Version 2)
Quarter: 2021Q3

REPORT INFORMATION
  Report Type: Spontaneous
  Country: JP (occurrence: JP)
  Receive Date: 20210804
  Receipt Date: 20210819
  Transmission Date: 20211014
  Serious: Yes (Hospitalization)
  Sender: FDA-Public Use
  Company Number: JP-SA-2021SA255332

PATIENT
  Age: 67 Year
  Sex: Male
  Weight: 68.6 kg

DRUGS (1)
  1. DUPIXENT [Suspect]
     Active Substance: DUPILUMAB
     Indication: NASAL POLYPS
     Dosage: DAILY DOSE: 300 MG
     Route: 058
     Dates: start: 20210727

REACTIONS (3)
  - Dysuria [Recovering/Resolving]
  - Pyrexia [Recovered/Resolved]
  - Prostatitis [Recovering/Resolving]

NARRATIVE: CASE EVENT DATE: 20210731
